FAERS Safety Report 7332504-6 (Version None)
Quarter: 2011Q1

REPORT INFORMATION
  Report Type: 
  Country: None (occurrence: None)
  Receive Date: 20110304
  Receipt Date: 20110228
  Transmission Date: 20110831
  Serious: Yes (Hospitalization, Other)
  Sender: FDA-Public Use
  Company Number: US-ABBOTT-11P-163-0708573-00

PATIENT
  Sex: Female
  Weight: 70.37 kg

DRUGS (2)
  1. HUMIRA [Suspect]
     Indication: CROHN'S DISEASE
     Route: 058
     Dates: start: 20101104, end: 20101207
  2. HUMIRA [Suspect]
     Route: 058
     Dates: start: 20110112, end: 20110126

REACTIONS (8)
  - MUSCULOSKELETAL CHEST PAIN [None]
  - FOOT FRACTURE [None]
  - BILE DUCT STONE [None]
  - MUSCULAR WEAKNESS [None]
  - GALLBLADDER PAIN [None]
  - APPENDICITIS [None]
  - CHOLELITHIASIS [None]
  - PAIN IN EXTREMITY [None]
